FAERS Safety Report 4489769-8 (Version None)
Quarter: 2004Q4

REPORT INFORMATION
  Report Type: 
  Country: None (occurrence: None)
  Receive Date: 20041101
  Receipt Date: 20041026
  Transmission Date: 20050328
  Serious: Yes (Hospitalization, Other)
  Sender: FDA-Public Use
  Company Number: PHEH2004US11519

PATIENT
  Age: 87 Year
  Sex: Female

DRUGS (2)
  1. MIACALCIN [Suspect]
     Indication: BONE DENSITY DECREASED
     Dosage: 1 SQUIRT, QD
  2. CALCIUM [Concomitant]
     Dosage: 1200 UNITS, QD

REACTIONS (3)
  - BLOOD CALCIUM INCREASED [None]
  - ELECTROLYTE IMBALANCE [None]
  - LOSS OF CONSCIOUSNESS [None]
